FAERS Safety Report 21002380 (Version 1)
Quarter: 2022Q2

REPORT INFORMATION
  Report Type: Spontaneous
  Country: CZ (occurrence: CZ)
  Receive Date: 20220624
  Receipt Date: 20220624
  Transmission Date: 20220721
  Serious: Yes (Death, Other)
  Sender: FDA-Public Use
  Company Number: CZ-AMGEN-CZESP2022103643

PATIENT

DRUGS (6)
  1. XGEVA [Suspect]
     Active Substance: DENOSUMAB
     Indication: Breast cancer
     Dosage: UNK
     Route: 065
  2. XGEVA [Suspect]
     Active Substance: DENOSUMAB
     Indication: Prostate cancer
  3. XGEVA [Suspect]
     Active Substance: DENOSUMAB
     Indication: Gastrointestinal carcinoma
  4. XGEVA [Suspect]
     Active Substance: DENOSUMAB
     Indication: Renal cancer
  5. XGEVA [Suspect]
     Active Substance: DENOSUMAB
     Indication: Metastatic renal cell carcinoma
  6. XGEVA [Suspect]
     Active Substance: DENOSUMAB
     Indication: Metastases to bone

REACTIONS (8)
  - Death [Fatal]
  - Osteonecrosis of jaw [Unknown]
  - Toxicity to various agents [Unknown]
  - Renal function test abnormal [Unknown]
  - Adverse event [Unknown]
  - Blood calcium increased [Unknown]
  - Tooth disorder [Unknown]
  - Hypocalcaemia [Unknown]
